FAERS Safety Report 24664885 (Version 1)
Quarter: 2024Q4

REPORT INFORMATION
  Report Type: Spontaneous
  Country: FR (occurrence: FR)
  Receive Date: 20241126
  Receipt Date: 20241126
  Transmission Date: 20250115
  Serious: Yes (Other)
  Sender: MYLAN
  Company Number: FR-BRISTOL-MYERS SQUIBB COMPANY-2024-173960

PATIENT
  Age: 63 Year
  Sex: Male

DRUGS (3)
  1. DEXAMETHASONE [Suspect]
     Active Substance: DEXAMETHASONE
     Indication: Plasma cell myeloma
     Dosage: DOSE AND FREQUENCY: UNAVAILABLE
     Route: 065
     Dates: start: 201910, end: 202009
  2. POMALIDOMIDE [Suspect]
     Active Substance: POMALIDOMIDE
     Indication: Plasma cell myeloma
     Dosage: DOSE AND FREQUENCY: UNAVAILABLE
     Route: 065
     Dates: start: 201910, end: 202009
  3. DARATUMUMAB [Suspect]
     Active Substance: DARATUMUMAB
     Indication: Plasma cell myeloma
     Dosage: DOSE AND FREQUENCY: UNAVAILABLE
     Route: 065
     Dates: start: 201910, end: 202009

REACTIONS (1)
  - Neuropathy peripheral [Unknown]
